FAERS Safety Report 13455620 (Version 1)
Quarter: 2017Q2

REPORT INFORMATION
  Report Type: Spontaneous
  Country: PL (occurrence: PL)
  Receive Date: 20170419
  Receipt Date: 20170419
  Transmission Date: 20170830
  Serious: Yes (Other)
  Sender: FDA-Public Use
  Company Number: PL-B.I. PHARMACEUTICALS,INC./RIDGEFIELD-2017-54-000008

PATIENT
  Age: 82 Year
  Sex: Female
  Weight: 40 kg

DRUGS (7)
  1. IPP 20 MG [Concomitant]
     Indication: GASTROOESOPHAGEAL REFLUX DISEASE
     Route: 048
  2. FLUTIXON, 125 UG/DAWKE, PROSZEK DO INHALACJI W KAPSULCE TWARDEJ [Concomitant]
     Indication: ASTHMA
     Route: 055
  3. CONCOR COR 5MG [Concomitant]
     Indication: CARDIAC FAILURE
     Route: 048
  4. PRADAXA [Suspect]
     Active Substance: DABIGATRAN ETEXILATE MESYLATE
     Indication: ATRIAL FIBRILLATION
     Route: 048
     Dates: start: 20160801, end: 20160830
  5. KALIPOZ PROLONGATUM [Concomitant]
     Indication: HYPOKALAEMIA
     Route: 048
  6. PROTEVASC SR 35 MG [Concomitant]
     Indication: ANGINA PECTORIS
     Route: 048
  7. TORAMIDE 5 MG, [Concomitant]
     Indication: OEDEMA
     Route: 048

REACTIONS (6)
  - Rectal haemorrhage [Recovered/Resolved]
  - Oesophageal pain [Recovered/Resolved]
  - Alopecia [Recovered/Resolved]
  - Extravasation blood [Recovered/Resolved]
  - Vomiting [Recovered/Resolved]
  - Nausea [Recovered/Resolved]

NARRATIVE: CASE EVENT DATE: 201608
